FAERS Safety Report 13402128 (Version 1)
Quarter: 2017Q2

REPORT INFORMATION
  Report Type: Spontaneous
  Country: US (occurrence: US)
  Receive Date: 20170404
  Receipt Date: 20170404
  Transmission Date: 20170830
  Serious: No
  Sender: FDA-Public Use
  Company Number: US-ARBOR PHARMACEUTICALS, LLC-US-2016ARB000140

PATIENT
  Sex: Male

DRUGS (3)
  1. SKLICE [Suspect]
     Active Substance: IVERMECTIN
     Indication: LICE INFESTATION
     Dosage: 1 DF, SINGLE
     Route: 061
     Dates: start: 201601, end: 201601
  2. SKLICE [Suspect]
     Active Substance: IVERMECTIN
     Dosage: 1 DF, SINGLE
     Route: 061
     Dates: start: 20160126, end: 20160126
  3. SKLICE [Suspect]
     Active Substance: IVERMECTIN
     Dosage: 1 DF, SINGLE
     Route: 061
     Dates: start: 201601, end: 201601

REACTIONS (1)
  - Lice infestation [Unknown]

NARRATIVE: CASE EVENT DATE: 201601
